FAERS Safety Report 18363953 (Version 1)
Quarter: 2020Q4

REPORT INFORMATION
  Report Type: Report from Study
  Country: BR (occurrence: BR)
  Receive Date: 20201009
  Receipt Date: 20201009
  Transmission Date: 20210114
  Serious: Yes (Other)
  Sender: FDA-Public Use
  Company Number: BR-JNJFOC-20201002794

PATIENT
  Age: 23 Year
  Sex: Male
  Weight: 50 kg

DRUGS (2)
  1. INFLIXIMAB, RECOMBINANT [Suspect]
     Active Substance: INFLIXIMAB
     Indication: COLITIS ULCERATIVE
     Dosage: 3 VIALS, INDUCTION PHASE (3RD DOSE IN AUG/2019)
     Route: 042
     Dates: start: 201906, end: 201908
  2. AZATHIOPRINE. [Concomitant]
     Active Substance: AZATHIOPRINE

REACTIONS (1)
  - Tuberculosis [Unknown]

NARRATIVE: CASE EVENT DATE: 201908
